FAERS Safety Report 4980828-X (Version None)
Quarter: 2006Q2

REPORT INFORMATION
  Report Type: 
  Country: None (occurrence: None)
  Receive Date: 20060424
  Receipt Date: 20060202
  Transmission Date: 20061013
  Serious: Yes (Hospitalization, Disabling)
  Sender: FDA-Public Use
  Company Number: US-MERCK-0602USA01576

PATIENT
  Age: 57 Year
  Sex: Male
  Weight: 107 kg

DRUGS (5)
  1. VIOXX [Suspect]
     Indication: GOUT
     Route: 048
     Dates: start: 19990101, end: 20010101
  2. VIOXX [Suspect]
     Route: 048
     Dates: start: 20020101, end: 20040101
  3. VIOXX [Suspect]
     Indication: ARTHRITIS
     Route: 048
     Dates: start: 19990101, end: 20010101
  4. VIOXX [Suspect]
     Route: 048
     Dates: start: 20020101, end: 20040101
  5. ASPIRIN [Concomitant]
     Route: 065

REACTIONS (8)
  - ANXIETY [None]
  - BIPOLAR DISORDER [None]
  - CARDIAC DISORDER [None]
  - CONFUSIONAL STATE [None]
  - DEPRESSION [None]
  - MYOCARDIAL INFARCTION [None]
  - PANIC ATTACK [None]
  - SUICIDAL IDEATION [None]
